FAERS Safety Report 10694573 (Version 16)
Quarter: 2016Q3

REPORT INFORMATION
  Report Type: Report from Study
  Country: CA (occurrence: CA)
  Receive Date: 20150107
  Receipt Date: 20160708
  Transmission Date: 20161109
  Serious: Yes (Hospitalization, Other)
  Sender: FDA-Public Use
  Company Number: CA-ROCHE-1387659

PATIENT
  Age: 53 Year
  Sex: Female
  Weight: 95.34 kg

DRUGS (22)
  1. RITUXAN [Suspect]
     Active Substance: RITUXIMAB
     Indication: RHEUMATOID ARTHRITIS
     Dosage: LAST RITUXIMAB INFUSION: 01/MAY/2014
     Route: 042
     Dates: start: 20140417
  2. DIPHENHYDRAMINE HYDROCHLORIDE. [Concomitant]
     Active Substance: DIPHENHYDRAMINE HYDROCHLORIDE
     Indication: PREMEDICATION
     Route: 048
     Dates: start: 20140417
  3. TYLENOL WITH CODEINE [Concomitant]
     Active Substance: ACETAMINOPHEN\CODEINE PHOSPHATE
  4. NAPROXEN. [Concomitant]
     Active Substance: NAPROXEN
  5. PREDNISONE. [Suspect]
     Active Substance: PREDNISONE
     Indication: PRODUCT USED FOR UNKNOWN INDICATION
     Route: 065
     Dates: end: 2015
  6. GABAPENTIN. [Concomitant]
     Active Substance: GABAPENTIN
  7. CLONAZEPAM. [Concomitant]
     Active Substance: CLONAZEPAM
  8. METHOTREXATE. [Concomitant]
     Active Substance: METHOTREXATE
  9. RAMIPRIL. [Concomitant]
     Active Substance: RAMIPRIL
  10. SALBUTAMOL [Concomitant]
     Active Substance: ALBUTEROL
  11. VENLAFAXINE [Concomitant]
     Active Substance: VENLAFAXINE HYDROCHLORIDE
  12. MIRTAZAPINE. [Concomitant]
     Active Substance: MIRTAZAPINE
  13. TOPIRAMATE. [Concomitant]
     Active Substance: TOPIRAMATE
     Indication: MIGRAINE
     Route: 065
  14. HYDROMORPHONE [Concomitant]
     Active Substance: HYDROMORPHONE
  15. CYCLOBENZAPRINE [Concomitant]
     Active Substance: CYCLOBENZAPRINE
  16. ATROVENT [Concomitant]
     Active Substance: IPRATROPIUM BROMIDE
  17. ZOPICLONE [Concomitant]
     Active Substance: ZOPICLONE
  18. PANTOLOC [Concomitant]
     Active Substance: PANTOPRAZOLE SODIUM
  19. RITUXAN [Suspect]
     Active Substance: RITUXIMAB
     Route: 042
     Dates: start: 20160210
  20. ACETAMINOPHEN. [Concomitant]
     Active Substance: ACETAMINOPHEN
     Indication: PREMEDICATION
     Route: 048
     Dates: start: 20140417
  21. METHYLPREDNISOLONE. [Concomitant]
     Active Substance: METHYLPREDNISOLONE
     Indication: PREMEDICATION
     Route: 042
     Dates: start: 20140417
  22. QUETIAPINE. [Concomitant]
     Active Substance: QUETIAPINE

REACTIONS (25)
  - Influenza like illness [Recovering/Resolving]
  - Weight decreased [Unknown]
  - Hypotension [Unknown]
  - Arthritis [Not Recovered/Not Resolved]
  - Joint swelling [Unknown]
  - Emphysema [Not Recovered/Not Resolved]
  - Sinus disorder [Unknown]
  - Arthropathy [Unknown]
  - Arthralgia [Not Recovered/Not Resolved]
  - Hypoaesthesia [Unknown]
  - Pain in extremity [Unknown]
  - Hot flush [Recovered/Resolved]
  - Wheezing [Recovered/Resolved]
  - Pain in extremity [Unknown]
  - Oral herpes [Not Recovered/Not Resolved]
  - Cough [Unknown]
  - Lung infection [Not Recovered/Not Resolved]
  - Weight increased [Unknown]
  - Infusion related reaction [Recovered/Resolved]
  - Lip blister [Recovered/Resolved]
  - Peripheral swelling [Unknown]
  - Migraine [Unknown]
  - Oral herpes [Not Recovered/Not Resolved]
  - Body temperature decreased [Unknown]
  - Oxygen saturation decreased [Unknown]

NARRATIVE: CASE EVENT DATE: 20140417
